FAERS Safety Report 14608290 (Version 2)
Quarter: 2018Q2

REPORT INFORMATION
  Report Type: Spontaneous
  Country: US (occurrence: US)
  Receive Date: 20180307
  Receipt Date: 20180418
  Transmission Date: 20180711
  Serious: No
  Sender: FDA-Public Use
  Company Number: US-TEVA-2018-US-859017

PATIENT
  Sex: Female

DRUGS (2)
  1. ALLERGY RELIEF-D [Suspect]
     Active Substance: LORATADINE\PSEUDOEPHEDRINE SULFATE
     Indication: SINUS CONGESTION
     Route: 065
     Dates: start: 20180203, end: 20180204
  2. ALLERGY RELIEF-D [Suspect]
     Active Substance: LORATADINE\PSEUDOEPHEDRINE SULFATE
     Indication: SINUS DISORDER

REACTIONS (5)
  - Abdominal pain upper [Unknown]
  - Drug ineffective [Unknown]
  - Paranasal sinus discomfort [Unknown]
  - Abdominal discomfort [Unknown]
  - Vomiting [Unknown]
